FAERS Safety Report 5081277-9 (Version None)
Quarter: 2006Q3

REPORT INFORMATION
  Report Type: 
  Country: None (occurrence: None)
  Receive Date: 20060816
  Receipt Date: 20060809
  Transmission Date: 20061208
  Serious: Yes (Hospitalization)
  Sender: FDA-Public Use
  Company Number: 2006AP03737

PATIENT
  Age: 17136 Day
  Sex: Male

DRUGS (10)
  1. ATACAND HCT [Suspect]
     Indication: ESSENTIAL HYPERTENSION
     Dosage: 16/12.5
     Route: 048
  2. AMIZIDE [Suspect]
     Indication: OEDEMA
     Route: 048
     Dates: start: 20050715, end: 20060323
  3. AMIZIDE [Suspect]
     Route: 048
     Dates: start: 20050715, end: 20060323
  4. CELEBREX [Suspect]
     Indication: OSTEOARTHRITIS
     Route: 048
     Dates: end: 20060323
  5. DIABEX [Suspect]
     Route: 048
     Dates: start: 20060215, end: 20060323
  6. LASIX [Suspect]
     Indication: OEDEMA
     Dates: start: 20051111, end: 20060323
  7. LASIX [Suspect]
     Dates: start: 20051111, end: 20060323
  8. PROGOUT [Suspect]
     Indication: GOUT
     Route: 048
     Dates: end: 20060323
  9. LIPITOR [Concomitant]
     Indication: METABOLIC DISORDER
     Dosage: LONG TERM THERAPY
     Dates: end: 20060323
  10. NEXIUM [Concomitant]
     Indication: OESOPHAGEAL DISORDER
     Dosage: LONG TERM THERAPY
     Route: 048

REACTIONS (8)
  - COORDINATION ABNORMAL [None]
  - DIARRHOEA [None]
  - HYPOAESTHESIA [None]
  - PARAESTHESIA [None]
  - RENAL IMPAIRMENT [None]
  - SOMNOLENCE [None]
  - TREMOR [None]
  - VOMITING [None]
